FAERS Safety Report 10205040 (Version 1)
Quarter: 2014Q2

REPORT INFORMATION
  Report Type: Report from Study
  Country: AR (occurrence: AR)
  Receive Date: 20140529
  Receipt Date: 20140529
  Transmission Date: 20141212
  Serious: Yes (Hospitalization, Other)
  Sender: FDA-Public Use
  Company Number: PHHY2014AR065921

PATIENT
  Sex: Female

DRUGS (3)
  1. DIOVAN [Suspect]
     Indication: RENAL DISORDER
     Dosage: 320 MG, UNK
     Route: 048
  2. DIOVAN [Suspect]
     Indication: OFF LABEL USE
     Dosage: 0.5 DF (80MG), DAILY
     Route: 048
  3. DIOVAN [Suspect]
     Dosage: 0.5 DF (160MG), DAILY
     Route: 048

REACTIONS (5)
  - Neoplasm [Recovered/Resolved]
  - Feeling abnormal [Recovered/Resolved]
  - Confusional state [Unknown]
  - Blood pressure abnormal [Unknown]
  - Wrong technique in drug usage process [Unknown]
